FAERS Safety Report 5627476-6 (Version None)
Quarter: 2008Q1

REPORT INFORMATION
  Report Type: 
  Country: None (occurrence: None)
  Receive Date: 20080215
  Receipt Date: 20080212
  Transmission Date: 20080703
  Serious: Yes (Death, Life-Threatening, Other)
  Sender: FDA-Public Use
  Company Number: DE-ABBOTT-08P-062-0437996-00

PATIENT
  Age: 76 Year
  Sex: Female
  Weight: 54 kg

DRUGS (8)
  1. SEVOFLURANE [Suspect]
     Indication: MAINTENANCE OF ANAESTHESIA
     Dosage: MAX END-TIDAL CONCENTRATION OF 1.0 VOL%
  2. FLUNITRAZEPAM [Concomitant]
     Indication: PREMEDICATION
  3. MIDAZOLAM HCL [Concomitant]
     Indication: INDUCTION OF ANAESTHESIA
     Route: 042
  4. SUFENTANIL CITRATE [Concomitant]
     Indication: INDUCTION OF ANAESTHESIA
     Route: 042
  5. SUFENTANIL CITRATE [Concomitant]
     Indication: MAINTENANCE OF ANAESTHESIA
  6. PANCURONIUM [Concomitant]
     Indication: DRUG USE FOR UNKNOWN INDICATION
     Route: 042
  7. PROPOFOL [Concomitant]
     Indication: DRUG USE FOR UNKNOWN INDICATION
     Dosage: NOT REPORTED
  8. PROPOFOL [Concomitant]
     Indication: SEDATION
     Dosage: IN THE ICU

REACTIONS (2)
  - HEPATIC FAILURE [None]
  - HEPATITIS [None]
